FAERS Safety Report 13820469 (Version 1)
Quarter: 2017Q3

REPORT INFORMATION
  Report Type: Spontaneous
  Country: US (occurrence: US)
  Receive Date: 20170801
  Receipt Date: 20170801
  Transmission Date: 20171127
  Serious: No
  Sender: FDA-Public Use
  Company Number: None

PATIENT
  Age: 61 Year
  Sex: Female
  Weight: 85.28 kg

DRUGS (1)
  1. RABEPRAZOLE 20MG [Suspect]
     Active Substance: RABEPRAZOLE
     Indication: GASTROOESOPHAGEAL REFLUX DISEASE
     Route: 048
     Dates: start: 201704, end: 201707

REACTIONS (4)
  - Condition aggravated [None]
  - Product substitution issue [None]
  - Gastrooesophageal reflux disease [None]
  - Therapeutic response changed [None]
